FAERS Safety Report 17429979 (Version 14)
Quarter: 2021Q1

REPORT INFORMATION
  Report Type: Spontaneous
  Country: US (occurrence: US)
  Receive Date: 20200218
  Receipt Date: 20210205
  Transmission Date: 20210419
  Serious: No
  Sender: FDA-Public Use
  Company Number: US-PFIZER INC-2020069102

PATIENT
  Age: 48 Year
  Sex: Female
  Weight: 124.74 kg

DRUGS (1)
  1. GENOTROPIN [Suspect]
     Active Substance: SOMATROPIN
     Indication: GROWTH HORMONE DEFICIENCY
     Dosage: 0.1 MG, DAILY
     Dates: start: 20141006

REACTIONS (10)
  - Somnolence [Unknown]
  - Bronchitis [Unknown]
  - Exposure via skin contact [Unknown]
  - Pain [Not Recovered/Not Resolved]
  - Insomnia [Unknown]
  - Altered visual depth perception [Unknown]
  - Tachyphrenia [Unknown]
  - Accidental exposure to product [Unknown]
  - Product physical issue [Unknown]
  - Malaise [Unknown]

NARRATIVE: CASE EVENT DATE: 20200410
